FAERS Safety Report 18358668 (Version 2)
Quarter: 2020Q4

REPORT INFORMATION
  Report Type: Spontaneous
  Country: US (occurrence: US)
  Receive Date: 20201008
  Receipt Date: 20201030
  Transmission Date: 20210114
  Serious: Yes (Death)
  Sender: FDA-Public Use
  Company Number: US-KARYOPHARM-2020KPT001094

PATIENT

DRUGS (4)
  1. DEXAMETHASONE. [Concomitant]
     Active Substance: DEXAMETHASONE
     Indication: PRODUCT USED FOR UNKNOWN INDICATION
  2. XPOVIO [Suspect]
     Active Substance: SELINEXOR
     Indication: PLASMA CELL MYELOMA
     Dosage: 100 MG, WEEKLY
     Route: 048
     Dates: start: 20200909
  3. VARUBI [Concomitant]
     Active Substance: ROLAPITANT
     Indication: NAUSEA
  4. ZOFRAN [Concomitant]
     Active Substance: ONDANSETRON HYDROCHLORIDE
     Indication: NAUSEA
     Dosage: UNK, QD

REACTIONS (5)
  - Weight decreased [Unknown]
  - Thrombocytopenia [Unknown]
  - Anaemia [Unknown]
  - Death [Fatal]
  - Dysphonia [Unknown]

NARRATIVE: CASE EVENT DATE: 202009
